FAERS Safety Report 9784011 (Version 1)
Quarter: 2013Q4

REPORT INFORMATION
  Report Type: Spontaneous
  Country: US (occurrence: US)
  Receive Date: 20131226
  Receipt Date: 20131226
  Transmission Date: 20140711
  Serious: Yes (Disabling)
  Sender: FDA-Public Use
  Company Number: US-GE HEALTHCARE MEDICAL DIAGNOSTICS-OSCN-PR-1312S-0141

PATIENT
  Age: 44 Year
  Sex: Female

DRUGS (2)
  1. OMNISCAN [Suspect]
     Indication: ABDOMINAL MASS
     Route: 042
     Dates: start: 20050711, end: 20050711
  2. GADOLINIUM (UNSPECIFIED) [Suspect]
     Indication: NECK PAIN
     Route: 042
     Dates: start: 20100413, end: 20100413

REACTIONS (1)
  - Nephrogenic systemic fibrosis [Not Recovered/Not Resolved]
